FAERS Safety Report 9549627 (Version 1)
Quarter: 2013Q3

REPORT INFORMATION
  Report Type: Spontaneous
  Country: US (occurrence: US)
  Receive Date: 20130924
  Receipt Date: 20130924
  Transmission Date: 20140515
  Serious: Yes (Hospitalization)
  Sender: FDA-Public Use
  Company Number: US-MERCK-1210USA000884

PATIENT
  Age: 50 Year
  Sex: Male

DRUGS (10)
  1. JANUMET [Suspect]
  2. METFORMIN [Suspect]
  3. ATENOLOL [Suspect]
  4. ASPIRIN [Suspect]
  5. ZOCOR [Suspect]
  6. TRICOR (ADENOSINE) [Suspect]
  7. IRON (UNSPECIFIED) [Concomitant]
  8. KLONOPIN [Concomitant]
  9. RISPERDAL [Concomitant]
  10. COGENTIN [Concomitant]

REACTIONS (2)
  - Renal failure [Unknown]
  - Hyperkalaemia [Unknown]
